FAERS Safety Report 15487414 (Version 1)
Quarter: 2018Q4

REPORT INFORMATION
  Report Type: Spontaneous
  Country: US (occurrence: US)
  Receive Date: 20181003
  Receipt Date: 20181003
  Transmission Date: 20190205
  Serious: Yes (Hospitalization, Disabling)
  Sender: FDA-Public Use
  Company Number: None

PATIENT
  Age: 48 Year
  Sex: Female
  Weight: 49.5 kg

DRUGS (3)
  1. BIOTIN [Concomitant]
     Active Substance: BIOTIN
  2. LEVITHYROXINE PROPALYNOL [Concomitant]
  3. DYSPORT [Suspect]
     Active Substance: ABOBOTULINUMTOXINA
     Indication: SKIN WRINKLING
     Dates: start: 20180918

REACTIONS (9)
  - Paraesthesia [None]
  - Hypoaesthesia [None]
  - Erythema [None]
  - Insomnia [None]
  - Eyelid ptosis [None]
  - Drug ineffective [None]
  - Decreased appetite [None]
  - Chills [None]
  - Dehydration [None]

NARRATIVE: CASE EVENT DATE: 20180918
